FAERS Safety Report 16009059 (Version 2)
Quarter: 2019Q1

REPORT INFORMATION
  Report Type: Spontaneous
  Country: CN (occurrence: CN)
  Receive Date: 20190226
  Receipt Date: 20190305
  Transmission Date: 20190418
  Serious: Yes (Hospitalization)
  Sender: FDA-Public Use
  Company Number: CN-NOVOPROD-647912

PATIENT
  Age: 77 Year
  Sex: Male

DRUGS (4)
  1. ACARBOSE. [Suspect]
     Active Substance: ACARBOSE
     Indication: DERMATITIS
     Dosage: 30 TAB QD
     Route: 048
  2. INSULIN GLARGINE [Suspect]
     Active Substance: INSULIN GLARGINE
     Indication: PRODUCT USED FOR UNKNOWN INDICATION
     Dosage: 14 IU, QD (BEFORE GOING TO BED)
     Route: 058
     Dates: start: 20181119, end: 20181120
  3. NOVOLIN R [Suspect]
     Active Substance: INSULIN HUMAN
     Indication: DERMATITIS
     Dosage: 8 IU, TID (BEFORE THREE MEALS)
     Route: 058
     Dates: start: 20181119, end: 20181124
  4. NOVOLIN N [Suspect]
     Active Substance: INSULIN HUMAN
     Indication: DERMATITIS
     Dosage: 8 IU, QD (BEFORE GOING TO BED)
     Route: 058
     Dates: start: 20181120, end: 20181124

REACTIONS (2)
  - Drug hypersensitivity [Unknown]
  - Rash [Recovering/Resolving]

NARRATIVE: CASE EVENT DATE: 20181121
